FAERS Safety Report 9995978 (Version 1)
Quarter: 2014Q1

REPORT INFORMATION
  Report Type: Spontaneous
  Country: US (occurrence: None)
  Receive Date: 20140310
  Receipt Date: 20140310
  Transmission Date: 20141002
  Serious: Yes (Other)
  Sender: FDA-Public Use
  Company Number: None

PATIENT
  Age: 66 Year
  Sex: Female
  Weight: 52.16 kg

DRUGS (1)
  1. CLONIDINE TRANSDERMAL SYSTEM [Suspect]
     Indication: HYPERTENSION
     Route: 061
     Dates: start: 201207

REACTIONS (6)
  - Pruritus [None]
  - Erythema [None]
  - Scab [None]
  - Hypertension [None]
  - Headache [None]
  - Dry skin [None]
